FAERS Safety Report 23687552 (Version 1)
Quarter: 2024Q1

REPORT INFORMATION
  Report Type: Spontaneous
  Country: US (occurrence: US)
  Receive Date: 20240329
  Receipt Date: 20240329
  Transmission Date: 20240410
  Serious: Yes (Hospitalization, Disabling)
  Sender: FDA-Public Use
  Company Number: US-JNJFOC-20240361330

PATIENT
  Age: 50 Year
  Sex: Female
  Weight: 131.84 kg

DRUGS (1)
  1. TECVAYLI [Suspect]
     Active Substance: TECLISTAMAB-CQYV
     Indication: Plasma cell myeloma
     Route: 058
     Dates: start: 20230403

REACTIONS (6)
  - Cytokine release syndrome [Not Recovered/Not Resolved]
  - Pain [Not Recovered/Not Resolved]
  - Anal incontinence [Not Recovered/Not Resolved]
  - Tumour lysis syndrome [Not Recovered/Not Resolved]
  - Urinary incontinence [Not Recovered/Not Resolved]
  - Gait disturbance [Not Recovered/Not Resolved]
